FAERS Safety Report 7715914-4 (Version None)
Quarter: 2011Q3

REPORT INFORMATION
  Report Type: 
  Country: None (occurrence: None)
  Receive Date: 20110823
  Receipt Date: 20110815
  Transmission Date: 20111222
  Serious: Yes (Death, Other)
  Sender: FDA-Public Use
  Company Number: 121401

PATIENT
  Age: 48 Year
  Sex: Female

DRUGS (1)
  1. DAUNORUBICIN HCL [Suspect]
     Indication: ACUTE MYELOID LEUKAEMIA
     Dosage: 60MG/M2, 1X/DAY, IV
     Route: 042
     Dates: start: 20080910, end: 20080912

REACTIONS (4)
  - SEPSIS [None]
  - CARDIAC ARREST [None]
  - FUNGAL INFECTION [None]
  - CYTOLYTIC HEPATITIS [None]
